FAERS Safety Report 14153454 (Version 2)
Quarter: 2019Q2

REPORT INFORMATION
  Report Type: Spontaneous
  Country: US (occurrence: US)
  Receive Date: 20171102
  Receipt Date: 20190527
  Transmission Date: 20190711
  Serious: No
  Sender: FDA-Public Use
  Company Number: US-SA-2017SA157170

PATIENT
  Age: 55 Year
  Sex: Female
  Weight: 72.57 kg

DRUGS (3)
  1. FLECAINIDE [Concomitant]
     Active Substance: FLECAINIDE
     Dosage: 1 DF,Q12H
     Route: 048
  2. PRALUENT [Suspect]
     Active Substance: ALIROCUMAB
     Dosage: UNK UNK,UNK
     Route: 058
  3. CARTIA XT [Concomitant]
     Active Substance: DILTIAZEM HYDROCHLORIDE
     Dosage: 120 MG,QD
     Route: 048

REACTIONS (3)
  - Headache [Unknown]
  - Product dose omission [Unknown]
  - Fatigue [Unknown]
